FAERS Safety Report 15886394 (Version 2)
Quarter: 2019Q1

REPORT INFORMATION
  Report Type: Report from Study
  Country: JP (occurrence: JP)
  Receive Date: 20190129
  Receipt Date: 20190305
  Transmission Date: 20190417
  Serious: Yes (Death, Life-Threatening, Other)
  Sender: FDA-Public Use
  Company Number: JP-SHIRE-JP201902327AA

PATIENT
  Age: 23 Year
  Sex: Male
  Weight: 24.3 kg

DRUGS (13)
  1. FYCOMPA [Concomitant]
     Active Substance: PERAMPANEL
     Dosage: 1.5 MILLIGRAM, UNKNOWN
     Route: 048
     Dates: start: 20180208, end: 20180309
  2. NEUQUINON [Concomitant]
     Active Substance: UBIDECARENONE
     Indication: PRODUCT USED FOR UNKNOWN INDICATION
     Dosage: 30 MILLIGRAM, UNKNOWN
     Route: 048
     Dates: end: 20190120
  3. FYCOMPA [Concomitant]
     Active Substance: PERAMPANEL
     Dosage: 1 MILLIGRAM, UNKNOWN
     Route: 048
     Dates: start: 20171223, end: 20180207
  4. NEXIUM [Concomitant]
     Active Substance: ESOMEPRAZOLE MAGNESIUM
     Indication: PRODUCT USED FOR UNKNOWN INDICATION
     Dosage: 20 MILLIGRAM, UNKNOWN
     Route: 048
     Dates: start: 20181205, end: 20181221
  5. ALDACTONE A [Concomitant]
     Active Substance: SPIRONOLACTONE
     Dosage: 50 MILLIGRAM, UNKNOWN
     Route: 048
     Dates: start: 20181211, end: 20190120
  6. ASPARA POTASSIUM [Concomitant]
     Active Substance: POTASSIUM ASPARTATE
     Indication: PRODUCT USED FOR UNKNOWN INDICATION
     Dosage: 300 MILLIGRAM, UNKNOWN
     Route: 065
     Dates: start: 20181227, end: 20190119
  7. FYCOMPA [Concomitant]
     Active Substance: PERAMPANEL
     Indication: PRODUCT USED FOR UNKNOWN INDICATION
     Dosage: 0.5 MILLIGRAM, UNKNOWN
     Route: 048
     Dates: end: 20171222
  8. FYCOMPA [Concomitant]
     Active Substance: PERAMPANEL
     Dosage: 4 MILLIGRAM, UNKNOWN
     Route: 048
     Dates: start: 20180709, end: 20190120
  9. ALDACTONE A [Concomitant]
     Active Substance: SPIRONOLACTONE
     Indication: PRODUCT USED FOR UNKNOWN INDICATION
     Dosage: 25 MILLIGRAM, UNKNOWN
     Route: 048
     Dates: start: 20181129, end: 20181211
  10. VELAGLUCERASE ALFA [Suspect]
     Active Substance: VELAGLUCERASE ALFA
     Indication: GAUCHER^S DISEASE TYPE III
     Dosage: 60 INTERNATIONAL UNIT/KILOGRAM, 1X/2WKS
     Route: 042
     Dates: start: 20141211
  11. FYCOMPA [Concomitant]
     Active Substance: PERAMPANEL
     Dosage: 2 MILLIGRAM, UNKNOWN
     Route: 048
     Dates: start: 20180310, end: 20180708
  12. MIYA-BM [Concomitant]
     Active Substance: CLOSTRIDIUM BUTYRICUM SPORES STRAIN M-55
     Indication: PRODUCT USED FOR UNKNOWN INDICATION
     Dosage: 1.5 GRAM, UNKNOWN
     Route: 048
     Dates: start: 20180810, end: 20190120
  13. NEXIUM [Concomitant]
     Active Substance: ESOMEPRAZOLE MAGNESIUM
     Dosage: 10 MILLIGRAM, UNKNOWN
     Route: 048
     Dates: start: 20181222, end: 20190104

REACTIONS (2)
  - Cardiac failure congestive [Fatal]
  - Sepsis [Fatal]

NARRATIVE: CASE EVENT DATE: 20190118
